FAERS Safety Report 6112342-2 (Version None)
Quarter: 2009Q1

REPORT INFORMATION
  Report Type: 
  Country: None (occurrence: None)
  Receive Date: 20090311
  Receipt Date: 20090311
  Transmission Date: 20090719
  Serious: No
  Sender: FDA-Public Use
  Company Number: None

PATIENT
  Sex: Female
  Weight: 77.1115 kg

DRUGS (2)
  1. CLONIDINE [Suspect]
     Indication: HYPERTENSION
     Dosage: .1 MG 2XS DAILY
     Dates: start: 20090113, end: 20090117
  2. CIPRO [Suspect]
     Indication: INFECTION
     Dosage: 500 MG 2X'S DAILY
     Dates: start: 20090114, end: 20090121

REACTIONS (5)
  - CHILLS [None]
  - CHROMATURIA [None]
  - DRY MOUTH [None]
  - RASH [None]
  - SWELLING FACE [None]
